FAERS Safety Report 5694151-1 (Version None)
Quarter: 2008Q2

REPORT INFORMATION
  Report Type: 
  Country: None (occurrence: None)
  Receive Date: 20080402
  Receipt Date: 20080321
  Transmission Date: 20081010
  Serious: Yes (Other)
  Sender: FDA-Public Use
  Company Number: 8031033

PATIENT
  Age: 30 Year
  Sex: Female

DRUGS (6)
  1. KEPPRA [Suspect]
     Indication: EPILEPSY
     Dosage: 1500 MG 2/D PO
     Route: 048
  2. CORTISONE ACETATE [Concomitant]
  3. SYNTHROID [Concomitant]
  4. FOLIC ACID [Concomitant]
  5. MACROBID [Concomitant]
  6. KEFLEX [Concomitant]

REACTIONS (6)
  - ABORTION THREATENED [None]
  - ALPHA 1 FOETOPROTEIN INCREASED [None]
  - DRUG EXPOSURE DURING PREGNANCY [None]
  - INCONTINENCE [None]
  - PREGNANCY [None]
  - URINARY TRACT INFECTION [None]
